FAERS Safety Report 8008008-4 (Version None)
Quarter: 2011Q4

REPORT INFORMATION
  Report Type: 
  Country: None (occurrence: None)
  Receive Date: 20111227
  Receipt Date: 20111214
  Transmission Date: 20120403
  Serious: Yes (Other)
  Sender: FDA-Public Use
  Company Number: PHHY2011MX109999

PATIENT
  Age: 92 Year
  Sex: Male

DRUGS (2)
  1. CASEROX [Concomitant]
  2. ZOMETA [Suspect]
     Indication: OSTEOPOROSIS
     Dosage: 4MG/5ML QMO

REACTIONS (4)
  - PROSTATIC DISORDER [None]
  - ABASIA [None]
  - BONE PAIN [None]
  - POSTURE ABNORMAL [None]
